FAERS Safety Report 7401834-1 (Version None)
Quarter: 2011Q2

REPORT INFORMATION
  Report Type: 
  Country: None (occurrence: None)
  Receive Date: 20110408
  Receipt Date: 20110207
  Transmission Date: 20111010
  Serious: Yes (Hospitalization, Other)
  Sender: FDA-Public Use
  Company Number: US-BAYER-201028796NA

PATIENT
  Sex: Female
  Weight: 57 kg

DRUGS (10)
  1. ZYRTEC [Concomitant]
     Indication: SEASONAL ALLERGY
  2. OXYCODONE HCL AND ACETAMINOPHEN [Concomitant]
     Dosage: UNIT DOSE 7.5/500MG
  3. OCELLA [Suspect]
     Indication: DYSMENORRHOEA
     Route: 048
     Dates: start: 20050401, end: 20081201
  4. ORTHO TRI-CYCLEN LO [Concomitant]
  5. YASMIN [Suspect]
     Indication: CONTRACEPTION
     Route: 048
     Dates: start: 20050401, end: 20091201
  6. OCELLA [Suspect]
     Indication: CONTRACEPTION
  7. YAZ [Suspect]
     Route: 048
  8. ZEGERID [Concomitant]
  9. YASMIN [Suspect]
     Indication: DYSMENORRHOEA
  10. ANTIBIOTICS [Concomitant]
     Indication: PHARYNGITIS STREPTOCOCCAL
     Dates: start: 20070701, end: 20080801

REACTIONS (14)
  - LOSS OF CONSCIOUSNESS [None]
  - MOOD SWINGS [None]
  - VOMITING [None]
  - HEADACHE [None]
  - PALPITATIONS [None]
  - PRESYNCOPE [None]
  - ABDOMINAL PAIN UPPER [None]
  - VENTRICULAR TACHYCARDIA [None]
  - BILIARY DYSKINESIA [None]
  - CHOLECYSTITIS CHRONIC [None]
  - PROCEDURAL PAIN [None]
  - DIARRHOEA [None]
  - SYNCOPE [None]
  - DIZZINESS [None]
